FAERS Safety Report 6417617-5 (Version None)
Quarter: 2009Q4

REPORT INFORMATION
  Report Type: 
  Country: None (occurrence: None)
  Receive Date: 20091026
  Receipt Date: 20091013
  Transmission Date: 20100525
  Serious: Yes (Life-Threatening)
  Sender: FDA-Public Use
  Company Number: ADR37552009

PATIENT
  Age: 77 Year
  Sex: Female

DRUGS (9)
  1. SIMVASTATIN [Suspect]
     Dosage: 40 MG
  2. CIPROFLOXACIN [Concomitant]
  3. ASPIRIN [Concomitant]
  4. CIMETIDINE [Concomitant]
  5. FUROSEMIDE [Concomitant]
  6. ISOSORBIDE MONONITRATE (20 MG) [Concomitant]
  7. LEVOTHYROXINE SODIUM [Concomitant]
  8. NICORANDIL (10 MG) [Concomitant]
  9. PINDOLOL (2.5 MG) [Concomitant]

REACTIONS (1)
  - RHABDOMYOLYSIS [None]
